FAERS Safety Report 22939253 (Version 4)
Quarter: 2023Q4

REPORT INFORMATION
  Report Type: Report from Study
  Country: US (occurrence: US)
  Receive Date: 20230913
  Receipt Date: 20231013
  Transmission Date: 20240109
  Serious: Yes (Hospitalization, Other)
  Sender: FDA-Public Use
  Company Number: US-GILEAD-2023-0640023

PATIENT
  Sex: Female

DRUGS (5)
  1. AMBRISENTAN [Suspect]
     Active Substance: AMBRISENTAN
     Indication: Pulmonary arterial hypertension
     Dosage: 10 MG, QD
     Route: 065
     Dates: start: 20190430
  2. AMBRISENTAN [Suspect]
     Active Substance: AMBRISENTAN
     Indication: Pulmonary hypertension
  3. ADEMPAS [Concomitant]
     Active Substance: RIOCIGUAT
     Dosage: UNK
     Route: 065
  4. ADEMPAS [Concomitant]
     Active Substance: RIOCIGUAT
     Dosage: 2 MG, TID
     Route: 065
  5. ORENITRAM [Concomitant]
     Active Substance: TREPROSTINIL
     Dosage: UNK
     Route: 065

REACTIONS (7)
  - Cholecystectomy [Unknown]
  - Diarrhoea [Not Recovered/Not Resolved]
  - Dizziness [Unknown]
  - Hypotension [Unknown]
  - Nausea [Unknown]
  - Headache [Unknown]
  - Fatigue [Unknown]
